FAERS Safety Report 8801296 (Version 1)
Quarter: 2012Q4

REPORT INFORMATION
  Report Type: 
  Country: US (occurrence: US)
  Receive Date: 20120921
  Receipt Date: 20120921
  Transmission Date: 20130627
  Serious: Yes (Hospitalization, Other)
  Sender: FDA-Public Use
  Company Number: US-EISAI INC-E3810-05886-SPO-US

PATIENT
  Sex: Female
  Weight: 100 kg

DRUGS (2)
  1. ACIPHEX (RABEPRAZOLE) [Suspect]
     Indication: GERD
     Route: 048
     Dates: start: 1997
  2. LEVAQUIN [Suspect]
     Indication: CLL
     Route: 048
     Dates: start: 2011

REACTIONS (20)
  - Intestinal perforation [Unknown]
  - Cardiac failure congestive [Not Recovered/Not Resolved]
  - Chronic lymphocytic leukaemia [Not Recovered/Not Resolved]
  - Hospitalisation [Unknown]
  - Fibromyalgia [Not Recovered/Not Resolved]
  - Scar [Not Recovered/Not Resolved]
  - Gastrointestinal disorder [Not Recovered/Not Resolved]
  - Medical observation abnormal [Not Recovered/Not Resolved]
  - Asthenia [Unknown]
  - Decreased appetite [Unknown]
  - Pain [Unknown]
  - Mobility decreased [Unknown]
  - Swelling [Unknown]
  - White blood cell count increased [Unknown]
  - Infection [Unknown]
  - Urticaria [Unknown]
  - Erythema [Unknown]
  - Pruritus [Unknown]
  - Pericardial effusion [Not Recovered/Not Resolved]
  - Dyspnoea [Not Recovered/Not Resolved]
